FAERS Safety Report 22344743 (Version 1)
Quarter: 2023Q2

REPORT INFORMATION
  Report Type: Spontaneous
  Country: US (occurrence: US)
  Receive Date: 20230519
  Receipt Date: 20230519
  Transmission Date: 20230722
  Serious: Yes (Other)
  Sender: FDA-Public Use
  Company Number: US-ABBVIE-4772903

PATIENT
  Sex: Female

DRUGS (1)
  1. IMBRUVICA [Suspect]
     Active Substance: IBRUTINIB
     Indication: Product used for unknown indication
     Dosage: FORM STRENGTH: 70 MILLIGRAM?70 MG TABLET BY MOUTH ONCE DAILY WITH A GLASS OF WATER
     Route: 048

REACTIONS (1)
  - Implantable cardiac monitor insertion [Recovered/Resolved]
